FAERS Safety Report 8912357 (Version 2)
Quarter: 2014Q2

REPORT INFORMATION
  Report Type: Spontaneous
  Country: US (occurrence: US)
  Receive Date: 20121115
  Receipt Date: 20131018
  Transmission Date: 20141212
  Serious: Yes (Other)
  Sender: FDA-Public Use
  Company Number: US-PFIZER INC-2012281246

PATIENT
  Age: 6 Month
  Sex: 0

DRUGS (10)
  1. CHLORAMPHENICOL SODIUM SUCCINATE [Suspect]
     Dosage: 50 MG/KG/DAY
     Route: 042
  2. CHLORAMPHENICOL SODIUM SUCCINATE [Suspect]
     Dosage: 100 MG/KG/DAY
     Route: 042
  3. CHLORAMPHENICOL SODIUM SUCCINATE [Suspect]
     Dosage: 50 ?G/KG/DAY
  4. CHLORAMPHENICOL SODIUM SUCCINATE [Suspect]
     Dosage: 50 MG/KG/DAY
  5. AMPICILLIN [Concomitant]
     Dosage: 100 MG/KG/DAY
     Route: 042
  6. AMPICILLIN [Concomitant]
     Dosage: 200 MG/KG/DAY
  7. DIGOXIN [Concomitant]
     Dosage: 8?G/KG/DAY
  8. FUROSEMIDE [Concomitant]
     Dosage: 2 MG/KG, 2X/DAY
  9. CEPHALEXIN [Concomitant]
     Indication: RHINITIS
     Dosage: 125 MG, 4X/DAY
  10. CEPHALEXIN [Concomitant]
     Indication: COUGH

REACTIONS (2)
  - Drug level increased [Recovered/Resolved]
  - Left ventricular failure [Recovering/Resolving]
